FAERS Safety Report 7544645-9 (Version None)
Quarter: 2011Q2

REPORT INFORMATION
  Report Type: 
  Country: None (occurrence: None)
  Receive Date: 20110614
  Receipt Date: 20110606
  Transmission Date: 20111010
  Serious: No
  Sender: FDA-Public Use
  Company Number: US-BIOGENIDEC-2011BI011139

PATIENT
  Sex: Female

DRUGS (3)
  1. COPAXONE [Concomitant]
     Indication: MULTIPLE SCLEROSIS
  2. PROVIGIL [Concomitant]
     Indication: FATIGUE
     Dates: end: 20110401
  3. TYSABRI [Suspect]
     Indication: MULTIPLE SCLEROSIS
     Route: 042
     Dates: start: 20080514

REACTIONS (17)
  - MUSCULAR WEAKNESS [None]
  - CONTUSION [None]
  - ILL-DEFINED DISORDER [None]
  - FOOT FRACTURE [None]
  - GOUT [None]
  - FATIGUE [None]
  - VEIN DISORDER [None]
  - JOINT DISLOCATION [None]
  - BALANCE DISORDER [None]
  - BLOOD CHOLESTEROL INCREASED [None]
  - SLEEP APNOEA SYNDROME [None]
  - CENTRAL VENOUS CATHETERISATION [None]
  - MUSCLE INJURY [None]
  - MUSCULOSKELETAL PAIN [None]
  - BURNING SENSATION [None]
  - GAIT DISTURBANCE [None]
  - MUSCLE SPASMS [None]
